FAERS Safety Report 13175838 (Version 3)
Quarter: 2017Q1

REPORT INFORMATION
  Report Type: Spontaneous
  Country: PT (occurrence: PT)
  Receive Date: 20170201
  Receipt Date: 20170313
  Transmission Date: 20170428
  Serious: Yes (Hospitalization, Other)
  Sender: FDA-Public Use
  Company Number: PT-LANNETT COMPANY, INC.-PT-2017LAN000437

PATIENT
  Age: 23 Year
  Sex: Female

DRUGS (1)
  1. ESCITALOPRAM OXALATE. [Suspect]
     Active Substance: ESCITALOPRAM OXALATE
     Indication: MENTAL DISORDER
     Dosage: 10 MG TABLET UNK
     Dates: start: 201207, end: 201207

REACTIONS (6)
  - Carcinoid syndrome [Recovered/Resolved]
  - Metastases to liver [Recovering/Resolving]
  - Metastases to ovary [Recovered/Resolved]
  - Metastases to peritoneum [Recovered/Resolved]
  - Metastases to spleen [Recovered/Resolved]
  - Metastases to lymph nodes [Recovered/Resolved]
